FAERS Safety Report 15545431 (Version 1)
Quarter: 2018Q4

REPORT INFORMATION
  Report Type: Spontaneous
  Country: FR (occurrence: FR)
  Receive Date: 20181024
  Receipt Date: 20181024
  Transmission Date: 20190205
  Serious: Yes (Other)
  Sender: FDA-Public Use
  Company Number: FR-AUROBINDO-AUR-APL-2018-014006

PATIENT
  Age: 73 Year
  Sex: Male
  Weight: 69.5 kg

DRUGS (17)
  1. BEVACIZUMAB. [Suspect]
     Active Substance: BEVACIZUMAB
     Indication: COLON CANCER
     Dosage: (LAST ADMINISTRATION WAS ON 20/NOV/2013).
     Route: 065
     Dates: start: 20130729
  2. IRINOTECAN [Suspect]
     Active Substance: IRINOTECAN
     Indication: COLORECTAL CANCER METASTATIC
     Dosage: (LAST ADMINISTRATION WAS ON 20/NOV/2013).
     Route: 065
     Dates: start: 20130729
  3. 5-FLUOROURACIL                     /00098801/ [Suspect]
     Active Substance: FLUOROURACIL
     Dosage: UNK
     Route: 040
     Dates: start: 20180703
  4. BEVACIZUMAB. [Suspect]
     Active Substance: BEVACIZUMAB
     Indication: RECTAL CANCER
     Dosage: 41ST COURSE
     Route: 065
     Dates: start: 20150407
  5. BEVACIZUMAB. [Suspect]
     Active Substance: BEVACIZUMAB
     Dosage: UNK
     Route: 065
     Dates: start: 20180703
  6. CAPECITABINE. [Suspect]
     Active Substance: CAPECITABINE
     Dosage: 2800 MILLIGRAM
     Route: 065
     Dates: start: 20130304, end: 20130405
  7. AVASTIN                            /00848101/ [Suspect]
     Active Substance: SIMVASTATIN
     Indication: COLON CANCER
     Dosage: (LAST ADMINISTRATION WAS ON 20/NOV/2013).
     Route: 065
     Dates: start: 20130729
  8. 5-FLUOROURACIL                     /00098801/ [Suspect]
     Active Substance: FLUOROURACIL
     Dosage: 730 MILLIGRAM
     Route: 040
     Dates: start: 20130729, end: 20131120
  9. CAPECITABINE. [Suspect]
     Active Substance: CAPECITABINE
     Indication: COLORECTAL CANCER METASTATIC
     Dosage: 4300 MILLIGRAM
     Route: 065
     Dates: start: 20101117, end: 20110522
  10. AVASTIN                            /00848101/ [Suspect]
     Active Substance: SIMVASTATIN
     Indication: RECTAL CANCER
  11. FOLINIC ACID [Suspect]
     Active Substance: LEUCOVORIN
     Dosage: UNK
     Route: 065
     Dates: start: 20180703
  12. 5-FLUOROURACIL                     /00098801/ [Suspect]
     Active Substance: FLUOROURACIL
     Dosage: 3600 UNK
     Dates: start: 20150407
  13. IRINOTECAN [Suspect]
     Active Substance: IRINOTECAN
     Dosage: ()
     Route: 065
     Dates: start: 20180703
  14. IRINOTECAN [Suspect]
     Active Substance: IRINOTECAN
     Route: 065
     Dates: start: 20150407
  15. 5-FLUOROURACIL                     /00098801/ [Suspect]
     Active Substance: FLUOROURACIL
     Indication: COLORECTAL CANCER METASTATIC
     Dosage: 2930 MILLIGRAM
     Route: 040
     Dates: start: 20130729
  16. FOLINIC ACID [Suspect]
     Active Substance: LEUCOVORIN
     Indication: COLORECTAL CANCER METASTATIC
     Dosage: UNK
     Route: 065
     Dates: start: 20130729
  17. FOLINIC ACID [Suspect]
     Active Substance: LEUCOVORIN
     Dosage: 730 MILLIGRAM
     Route: 065
     Dates: start: 20150407

REACTIONS (5)
  - Haemorrhage [Unknown]
  - Epistaxis [Recovered/Resolved]
  - Oedema peripheral [Unknown]
  - Gingival bleeding [Recovered/Resolved]
  - Asthenia [Recovered/Resolved]

NARRATIVE: CASE EVENT DATE: 20131203
